FAERS Safety Report 25995631 (Version 1)
Quarter: 2025Q4

REPORT INFORMATION
  Report Type: Report from Study
  Country: US (occurrence: US)
  Receive Date: 20251104
  Receipt Date: 20251104
  Transmission Date: 20260117
  Serious: Yes (Other)
  Sender: ABBVIE
  Company Number: US-ABBVIE-6522697

PATIENT
  Sex: Male

DRUGS (1)
  1. HUMIRA [Suspect]
     Active Substance: ADALIMUMAB
     Indication: Product used for unknown indication
     Route: 058
     Dates: start: 20091201

REACTIONS (5)
  - Systemic lupus erythematosus [Unknown]
  - Vomiting [Unknown]
  - Stenosis [Unknown]
  - Inflammation [Recovering/Resolving]
  - Crohn^s disease [Unknown]
